FAERS Safety Report 4450645-8 (Version None)
Quarter: 2004Q3

REPORT INFORMATION
  Report Type: 
  Country: None (occurrence: None)
  Receive Date: 20040914
  Receipt Date: 20040902
  Transmission Date: 20050211
  Serious: Yes (Other)
  Sender: FDA-Public Use
  Company Number: 2004231860US

PATIENT
  Sex: Female

DRUGS (4)
  1. CELEBREX [Suspect]
     Indication: ARTHRITIS
     Dosage: 200 MG, QD, ORAL
     Route: 048
     Dates: start: 20040101
  2. CELEBREX [Suspect]
     Dosage: ORAL
     Route: 048
     Dates: start: 20040902
  3. PLAVIX [Concomitant]
  4. ACETYLSALICYLIC ACID [Concomitant]

REACTIONS (2)
  - IMPAIRED HEALING [None]
  - TOE OPERATION [None]
